FAERS Safety Report 10363346 (Version 2)
Quarter: 2014Q3

REPORT INFORMATION
  Report Type: Report from Study
  Country: MX (occurrence: MX)
  Receive Date: 20140805
  Receipt Date: 20140819
  Transmission Date: 20150326
  Serious: Yes (Other)
  Sender: FDA-Public Use
  Company Number: PHHY2014MX095483

PATIENT
  Age: 86 Year
  Sex: Female

DRUGS (7)
  1. RASILEZ [Suspect]
     Active Substance: ALISKIREN
     Indication: HYPERTENSION
     Dosage: 300 MG, DAILY
     Route: 048
     Dates: start: 2004
  2. MINIPRES [Concomitant]
     Indication: HYPERTENSION
     Dosage: 4 UKN, DAILY
  3. ATORVASTATIN [Concomitant]
     Active Substance: ATORVASTATIN
     Indication: ARTERIOSCLEROSIS
     Dosage: 1 UKN, Q72H
  4. RASILEZ [Suspect]
     Active Substance: ALISKIREN
     Dosage: 600 MG, DAILY
     Route: 048
  5. ANGIOTROFIN [Concomitant]
     Active Substance: DILTIAZEM HYDROCHLORIDE
     Indication: HYPERTENSION
     Dosage: 2 UKN, DAILY
  6. APROVEL [Concomitant]
     Active Substance: IRBESARTAN
     Indication: HYPERTENSION
     Dosage: 3 UKN, DAILY
  7. OMEPRAZOLE. [Concomitant]
     Active Substance: OMEPRAZOLE
     Indication: ABDOMINAL DISCOMFORT
     Dosage: 1 UKN, DAILY

REACTIONS (6)
  - Tremor [Recovered/Resolved]
  - Blood pressure increased [Not Recovered/Not Resolved]
  - Malaise [Recovered/Resolved]
  - Head titubation [Not Recovered/Not Resolved]
  - Aortic disorder [Not Recovered/Not Resolved]
  - Intraocular pressure increased [Not Recovered/Not Resolved]
